FAERS Safety Report 20840370 (Version 1)
Quarter: 2022Q2

REPORT INFORMATION
  Report Type: Spontaneous
  Country: US (occurrence: US)
  Receive Date: 20220517
  Receipt Date: 20220517
  Transmission Date: 20220721
  Serious: Yes (Other)
  Sender: FDA-Public Use
  Company Number: US-TEVA-2022-US-2037481

PATIENT
  Sex: Female

DRUGS (1)
  1. FENTANYL [Suspect]
     Active Substance: FENTANYL
     Dosage: EVERY 48 HOURS
     Route: 065
     Dates: start: 200905, end: 201908

REACTIONS (2)
  - Withdrawal syndrome [Unknown]
  - Drug dependence [Unknown]
